FAERS Safety Report 4366361-7 (Version None)
Quarter: 2004Q2

REPORT INFORMATION
  Report Type: 
  Country: None (occurrence: None)
  Receive Date: 20040527
  Receipt Date: 20040107
  Transmission Date: 20050107
  Serious: No
  Sender: FDA-Public Use
  Company Number: US-GLAXOSMITHKLINE-A0492203A

PATIENT

DRUGS (3)
  1. ALBUTEROL [Suspect]
     Indication: ILL-DEFINED DISORDER
     Route: 055
  2. PREDNISONE [Concomitant]
  3. ALLEGRA [Concomitant]

REACTIONS (2)
  - DRUG INEFFECTIVE [None]
  - DYSPNOEA [None]
